FAERS Safety Report 20231395 (Version 1)
Quarter: 2021Q4

REPORT INFORMATION
  Report Type: Spontaneous
  Country: TH (occurrence: TH)
  Receive Date: 20211227
  Receipt Date: 20211227
  Transmission Date: 20220303
  Serious: Yes (Other)
  Sender: FDA-Public Use
  Company Number: TH-NOVARTISPH-NVSC2021TH285695

PATIENT
  Age: 53 Year
  Sex: Male

DRUGS (5)
  1. BROMOCRIPTINE [Suspect]
     Active Substance: BROMOCRIPTINE
     Indication: Product used for unknown indication
     Dosage: 15 MG, QD
     Route: 065
     Dates: start: 200410
  2. OCTREOTIDE [Suspect]
     Active Substance: OCTREOTIDE
     Indication: Product used for unknown indication
     Dosage: 20 MG, Q4W
     Route: 030
  3. OCTREOTIDE [Suspect]
     Active Substance: OCTREOTIDE
     Dosage: 10-40 MG, Q4W
     Route: 030
  4. OCTREOTIDE [Suspect]
     Active Substance: OCTREOTIDE
     Dosage: 60 MG, Q4W
     Route: 030
  5. OCTREOTIDE [Suspect]
     Active Substance: OCTREOTIDE
     Dosage: 30 MG, Q3W (WEEK 1 ST)
     Route: 030

REACTIONS (4)
  - Invasive ductal breast carcinoma [Unknown]
  - Glucocorticoid deficiency [Unknown]
  - Hypopituitarism [Unknown]
  - Hypogonadism [Unknown]

NARRATIVE: CASE EVENT DATE: 20081001
